FAERS Safety Report 7194386-5 (Version None)
Quarter: 2010Q4

REPORT INFORMATION
  Report Type: 
  Country: None (occurrence: None)
  Receive Date: 20101223
  Receipt Date: 20101216
  Transmission Date: 20110411
  Serious: Yes (Hospitalization)
  Sender: FDA-Public Use
  Company Number: US-AMGEN-USACT2010010818

PATIENT
  Age: 51 Year
  Sex: Male
  Weight: 92 kg

DRUGS (2)
  1. EPOETIN ALFA - PROCRIT [Suspect]
     Indication: MYELODYSPLASTIC SYNDROME
     Dosage: 60000 UNIT, QWK
     Route: 058
     Dates: start: 20100404
  2. REVLIMID [Suspect]
     Indication: MYELODYSPLASTIC SYNDROME
     Dosage: 10 MG, QD
     Route: 048
     Dates: start: 20100404, end: 20101014

REACTIONS (2)
  - INTESTINAL ISCHAEMIA [None]
  - VISCERAL ARTERIAL ISCHAEMIA [None]
